FAERS Safety Report 19031221 (Version 1)
Quarter: 2021Q1

REPORT INFORMATION
  Report Type: Spontaneous
  Country: FR (occurrence: FR)
  Receive Date: 20210319
  Receipt Date: 20210319
  Transmission Date: 20210420
  Serious: Yes (Disabling)
  Sender: FDA-Public Use
  Company Number: FR-BAYER-2021-107017

PATIENT
  Age: 30 Year
  Sex: Female

DRUGS (1)
  1. JASMINELLE [Suspect]
     Active Substance: DROSPIRENONE
     Dosage: UNK
     Route: 048
     Dates: start: 202003

REACTIONS (1)
  - Hypoacusis [None]

NARRATIVE: CASE EVENT DATE: 202102
